FAERS Safety Report 8621434-5 (Version None)
Quarter: 2012Q3

REPORT INFORMATION
  Report Type: 
  Country: None (occurrence: None)
  Receive Date: 20120824
  Receipt Date: 20120820
  Transmission Date: 20120928
  Serious: Yes (Hospitalization)
  Sender: FDA-Public Use
  Company Number: US-ABBOTT-12P-163-0932753-00

PATIENT
  Sex: Male

DRUGS (8)
  1. UNKNOWN MEDICATION [Concomitant]
     Indication: BLOOD PRESSURE
     Dosage: PILLS
  2. UNKNOWN MEDICATION [Concomitant]
     Indication: ANTICOAGULANT THERAPY
  3. LORTAB [Concomitant]
     Indication: PAIN
  4. HUMIRA [Suspect]
     Indication: RHEUMATOID ARTHRITIS
     Dosage: TAKES EVERY OTHER THURSDAY NIGHT
     Dates: start: 20111215, end: 20120814
  5. TAMSULOSIN HCL [Concomitant]
     Indication: PRODUCT USED FOR UNKNOWN INDICATION
     Dosage: 0.4 MG CAPSULE
  6. UNKNOWN MEDICATION [Concomitant]
     Indication: ASTHMA
  7. ASTHMA [Concomitant]
     Indication: PRODUCT USED FOR UNKNOWN INDICATION
     Dosage: PILLS
  8. MELOXICAM [Concomitant]
     Indication: PRODUCT USED FOR UNKNOWN INDICATION
     Dosage: 15 MG TABLET

REACTIONS (12)
  - UNEVALUABLE EVENT [None]
  - RHEUMATOID ARTHRITIS [None]
  - DRUG INEFFECTIVE [None]
  - DISCOMFORT [None]
  - MEMORY IMPAIRMENT [None]
  - FATIGUE [None]
  - SWELLING FACE [None]
  - MUSCULOSKELETAL STIFFNESS [None]
  - HYPOAESTHESIA [None]
  - DEVICE MALFUNCTION [None]
  - LOSS OF CONSCIOUSNESS [None]
  - BLOOD SODIUM DECREASED [None]
